FAERS Safety Report 8094000-0 (Version None)
Quarter: 2012Q1

REPORT INFORMATION
  Report Type: 
  Country: None (occurrence: None)
  Receive Date: 20120131
  Receipt Date: 20120123
  Transmission Date: 20120608
  Serious: Yes (Other)
  Sender: FDA-Public Use
  Company Number: US-US-EMD SERONO, INC.-7108598

PATIENT
  Sex: Female
  Weight: 82 kg

DRUGS (5)
  1. REBIF [Suspect]
     Indication: PRODUCT USED FOR UNKNOWN INDICATION
     Route: 058
     Dates: start: 20090303
  2. EFFEXOR [Concomitant]
  3. BIRTH CONTROL [Concomitant]
  4. ADDERALL 5 [Concomitant]
  5. AMPYRA [Concomitant]

REACTIONS (1)
  - MALIGNANT MELANOMA [None]
